FAERS Safety Report 5528954-0 (Version None)
Quarter: 2007Q4

REPORT INFORMATION
  Report Type: 
  Country: None (occurrence: None)
  Receive Date: 20071129
  Receipt Date: 20071119
  Transmission Date: 20080405
  Serious: Yes (Life-Threatening)
  Sender: FDA-Public Use
  Company Number: FR-AVENTIS-200713672FR

PATIENT
  Age: 71 Year
  Sex: Male

DRUGS (8)
  1. AMARYL [Suspect]
     Route: 048
  2. GLUCOPHAGE [Suspect]
     Route: 048
  3. ALDACTAZIDE [Suspect]
     Route: 048
  4. COZAAR [Suspect]
     Route: 048
  5. CORGARD [Suspect]
     Route: 048
  6. TAHOR [Suspect]
     Route: 048
  7. ADANCOR [Suspect]
     Route: 048
  8. TILCOTIL [Suspect]
     Route: 048
     Dates: start: 20070717, end: 20070717

REACTIONS (1)
  - LACTIC ACIDOSIS [None]
